FAERS Safety Report 9934776 (Version 1)
Quarter: 2014Q1

REPORT INFORMATION
  Report Type: Spontaneous
  Country: US (occurrence: US)
  Receive Date: 20140228
  Receipt Date: 20140228
  Transmission Date: 20141002
  Serious: Yes (Other)
  Sender: FDA-Public Use
  Company Number: US-GLAXOSMITHKLINE-A1061896A

PATIENT
  Age: 65 Year
  Sex: Male

DRUGS (3)
  1. ADVAIR [Suspect]
     Indication: CHRONIC OBSTRUCTIVE PULMONARY DISEASE
     Route: 055
  2. UNSPECIFIED INHALER [Suspect]
     Indication: PRODUCT USED FOR UNKNOWN INDICATION
     Route: 055
  3. NO CONCURRENT MEDICATION [Concomitant]

REACTIONS (3)
  - Pneumonia [Recovering/Resolving]
  - Lung disorder [Recovering/Resolving]
  - Drug administration error [Unknown]
